FAERS Safety Report 16103086 (Version 2)
Quarter: 2019Q3

REPORT INFORMATION
  Report Type: Spontaneous
  Country: FR (occurrence: FR)
  Receive Date: 20190322
  Receipt Date: 20190724
  Transmission Date: 20191004
  Serious: Yes (Hospitalization)
  Sender: FDA-Public Use
  Company Number: FR-009507513-1903FRA007921

PATIENT
  Age: 58 Year
  Sex: Male
  Weight: 85 kg

DRUGS (10)
  1. HUMIRA [Suspect]
     Active Substance: ADALIMUMAB
     Indication: OSTEOMYELITIS
     Dosage: 1 DOSAGE FORM, ONCE (FORMULATION: SOLUTION FOR INJECTION IN PRE-FILLED SYRINGE)
     Route: 058
     Dates: start: 20190122, end: 20190122
  2. PREDNISONE. [Concomitant]
     Active Substance: PREDNISONE
     Indication: PAIN
     Dosage: UNKNOWN
     Route: 048
     Dates: start: 201901, end: 201901
  3. MONOPROST [Concomitant]
     Active Substance: LATANOPROST
     Dosage: UNKNOWN (50 MICROGRAMS / ML, EYE DROPS SOLUTION IN SINGLE-DOSE CONTAINER)
     Route: 047
  4. ENALAPRIL MALEATE. [Concomitant]
     Active Substance: ENALAPRIL MALEATE
     Dosage: 10 MILLIGRAM, QD
     Route: 048
  5. CODOLIPRANE [Suspect]
     Active Substance: ACETAMINOPHEN\CODEINE PHOSPHATE
     Indication: PAIN
     Dosage: 1 DOSAGE FORM
     Route: 048
     Dates: start: 201901, end: 201901
  6. ATORVASTATIN CALCIUM. [Concomitant]
     Active Substance: ATORVASTATIN CALCIUM
     Dosage: 10 MILLIGRAM, QD
     Route: 048
  7. KETOPROFEN. [Suspect]
     Active Substance: KETOPROFEN
     Indication: PAIN
     Dosage: 100 MILLIGRAM
     Route: 048
     Dates: start: 201901, end: 201901
  8. IBUPROFEN. [Suspect]
     Active Substance: IBUPROFEN
     Indication: PAIN
     Dosage: 1 DOSAGE FORM
     Route: 048
  9. KARDEGIC [Concomitant]
     Active Substance: ASPIRIN DL-LYSINE
     Indication: CARDIOVASCULAR EVENT PROPHYLAXIS
     Dosage: 1 DOSAGE FORM, QD (FORMULATION: POWDER FOR ORAL SOLUTION IN SINGLE-DOSE SACHET)
     Route: 048
  10. CELESTENE (BETAMETHASONE) [Suspect]
     Active Substance: BETAMETHASONE
     Indication: PAIN
     Dosage: UNKNOWN
     Route: 048
     Dates: start: 201901, end: 201901

REACTIONS (1)
  - Pancreatitis [Recovering/Resolving]

NARRATIVE: CASE EVENT DATE: 20190124
